FAERS Safety Report 5842643-4 (Version None)
Quarter: 2008Q3

REPORT INFORMATION
  Report Type: 
  Country: None (occurrence: None)
  Receive Date: 20080812
  Receipt Date: 20080806
  Transmission Date: 20090109
  Serious: Yes (Other)
  Sender: FDA-Public Use
  Company Number: JP-PFIZER INC-2008066232

PATIENT

DRUGS (2)
  1. ATARAX [Suspect]
     Dosage: DAILY DOSE:25MG
     Route: 042
  2. DRUG, UNSPECIFIED [Concomitant]
     Route: 048

REACTIONS (3)
  - ASPARTATE AMINOTRANSFERASE INCREASED [None]
  - ASTHENIA [None]
  - HEPATIC FUNCTION ABNORMAL [None]
